FAERS Safety Report 5103092-X (Version None)
Quarter: 2006Q3

REPORT INFORMATION
  Report Type: 
  Country: None (occurrence: None)
  Receive Date: 20060908
  Receipt Date: 20060831
  Transmission Date: 20061208
  Serious: Yes (Death)
  Sender: FDA-Public Use
  Company Number: 2006US001913

PATIENT
  Age: 66 Year
  Sex: Male

DRUGS (2)
  1. AMBISOME [Suspect]
     Indication: DRUG USE FOR UNKNOWN INDICATION
     Dosage: 100 MG, UID/QD, IV DRIP
     Route: 041
     Dates: start: 20060803
  2. FUNGUARD (MICAFUNGIN SODIUM) [Concomitant]

REACTIONS (4)
  - ASPHYXIA [None]
  - ASPIRATION [None]
  - DYSPNOEA [None]
  - PNEUMONIA [None]
